FAERS Safety Report 4582099-5 (Version None)
Quarter: 2005Q1

REPORT INFORMATION
  Report Type: 
  Country: None (occurrence: None)
  Receive Date: 20050119
  Receipt Date: 20031202
  Transmission Date: 20050727
  Serious: Yes (Hospitalization)
  Sender: FDA-Public Use
  Company Number: A03200302875

PATIENT
  Age: 68 Year
  Sex: Female
  Weight: 63.5036 kg

DRUGS (4)
  1. PLAVIX [Suspect]
     Indication: THROMBOSIS PROPHYLAXIS
     Dosage: 75 MG QD - ORAL
     Route: 048
     Dates: start: 20030912, end: 20030925
  2. LEVOTHYROXINE SODIUM [Concomitant]
  3. OXYBUTYNIN HYDROCHLORIDE [Concomitant]
  4. DILTIAZEM HYDROCHLORIDE [Concomitant]

REACTIONS (2)
  - ASTHENIA [None]
  - ATRIAL FIBRILLATION [None]
